FAERS Safety Report 11276966 (Version 1)
Quarter: 2015Q3

REPORT INFORMATION
  Report Type: Spontaneous
  Country: CH (occurrence: CH)
  Receive Date: 20150716
  Receipt Date: 20150716
  Transmission Date: 20151125
  Serious: Yes (Death, Life-Threatening, Hospitalization, Other)
  Sender: FDA-Public Use
  Company Number: CH-NAPPMUNDI-DEU-2015-0016985

PATIENT
  Age: 91 Year
  Sex: Female
  Weight: 57 kg

DRUGS (18)
  1. ATROVENT [Concomitant]
     Active Substance: IPRATROPIUM BROMIDE
     Dosage: UNK, QID
     Dates: start: 20150527
  2. CANDESARTAN [Concomitant]
     Active Substance: CANDESARTAN
     Dosage: 4 MG, AM
     Dates: start: 20150408
  3. MOTILIUM [Concomitant]
     Active Substance: DOMPERIDONE
     Dosage: 10 MG, TID PRN
     Dates: start: 20141209
  4. SPIRICORT [Concomitant]
     Active Substance: PREDNISOLONE
     Dosage: 5 MG, AM
     Dates: start: 20150603
  5. TARDYFERON [Concomitant]
     Active Substance: FERROUS SULFATE\FOLIC ACID
     Dosage: UNK
     Dates: start: 20150119
  6. VI-DE 3 [Concomitant]
     Dosage: 8 DROP, DAILY
     Dates: start: 20140604
  7. NEO MERCAZOL [Concomitant]
     Dosage: 5 MG, AM
     Dates: start: 20150526
  8. ACIDUM FOLICUM [Concomitant]
     Active Substance: FOLIC ACID
     Dosage: 5 MG, WEEKLY
     Dates: start: 20150205
  9. DAFALGAN [Concomitant]
     Active Substance: ACETAMINOPHEN
     Dosage: UNK, QID PRN
     Dates: start: 20150204
  10. TARGIN TABLETTEN RETARD [Suspect]
     Active Substance: NALOXONE HYDROCHLORIDE\OXYCODONE HYDROCHLORIDE
     Dosage: 5/2.5 MG, BID
     Route: 048
     Dates: start: 20141209
  11. ASPIRIN CARDIO [Concomitant]
     Active Substance: ASPIRIN
     Dosage: 100 MG, AM
     Dates: start: 20150526
  12. MARCOUMAR [Concomitant]
     Active Substance: PHENPROCOUMON
     Dosage: 3 MG, SEE TEXT
     Dates: start: 20150410
  13. TARGIN TABLETTEN RETARD [Suspect]
     Active Substance: NALOXONE HYDROCHLORIDE\OXYCODONE HYDROCHLORIDE
     Indication: MUSCULOSKELETAL PAIN
     Dosage: 10/5 MG, BID
     Route: 048
     Dates: start: 20141218
  14. PANTOPRAZOL SANDOZ [Concomitant]
     Dosage: 40 MG, AM
     Dates: start: 20150506
  15. AMOXICILLIN. [Concomitant]
     Active Substance: AMOXICILLIN
     Dosage: 3 TABLET, SINGLE
     Dates: start: 20150410
  16. BILOL [Concomitant]
     Active Substance: BISOPROLOL
     Dosage: 1.25 MG, DAILY
     Dates: start: 20150311
  17. MINALGIN [Concomitant]
     Active Substance: METAMIZOLE
     Dosage: UNK, PRN
     Dates: start: 20150415
  18. TORASEMID SANDOZ [Concomitant]
     Active Substance: TORSEMIDE
     Dosage: 10 MG, TID
     Dates: start: 20150526

REACTIONS (9)
  - Constipation [Unknown]
  - Nausea [Unknown]
  - Abdominal pain [Unknown]
  - Faecaloma [Unknown]
  - Hypertension [Unknown]
  - Intestinal perforation [Fatal]
  - Tachycardia [Unknown]
  - Cardiac failure [Fatal]
  - General physical health deterioration [Fatal]

NARRATIVE: CASE EVENT DATE: 20150611
